FAERS Safety Report 9767244 (Version 3)
Quarter: 2014Q2

REPORT INFORMATION
  Report Type: Spontaneous
  Country: FR (occurrence: None)
  Receive Date: 20131213
  Receipt Date: 20140630
  Transmission Date: 20141212
  Serious: Yes (Other)
  Sender: FDA-Public Use
  Company Number: AXC-2013-000654

PATIENT
  Age: 43 Year
  Sex: Female

DRUGS (1)
  1. PYLERA (BISMUTH SUBCITRATE POTASSIUM, METRONIDAZOLE, TETRACYCLINE HYDROCHLORIDE) CAPSULE [Suspect]
     Indication: PEPTIC ULCER HELICOBACTER
     Dosage: 3 DF, QID, ORAL
     Route: 048
     Dates: start: 20131108, end: 20131113

REACTIONS (4)
  - Muscle twitching [None]
  - Headache [None]
  - Vomiting [None]
  - Abdominal pain [None]
